FAERS Safety Report 9275566 (Version 2)
Quarter: 2013Q2

REPORT INFORMATION
  Report Type: Spontaneous
  Country: FR (occurrence: None)
  Receive Date: 20130430
  Receipt Date: 20130430
  Transmission Date: 20140414
  Serious: Yes (Hospitalization)
  Sender: FDA-Public Use
  Company Number: FR-011502

PATIENT
  Age: 78 Year
  Sex: Female

DRUGS (1)
  1. PICOPREP [Suspect]
     Indication: BOWEL PREPARATION
     Route: 048
     Dates: start: 201303

REACTIONS (1)
  - Regurgitation [None]
